FAERS Safety Report 6276721-5 (Version None)
Quarter: 2009Q3

REPORT INFORMATION
  Report Type: 
  Country: None (occurrence: None)
  Receive Date: 20090722
  Receipt Date: 20080730
  Transmission Date: 20100115
  Serious: No
  Sender: FDA-Public Use
  Company Number: US-BRISTOL-MYERS SQUIBB COMPANY-14282503

PATIENT
  Age: 86 Year
  Sex: Female
  Weight: 67 kg

DRUGS (3)
  1. COUMADIN [Suspect]
     Indication: ATRIAL FIBRILLATION
     Dosage: COUMADIN CHANGED TO 2.5 MG ON MONDAY,WEDNESDAY,FRIDAY+SATURDAY, 1.25MG ON TUESDAY+THURSDAY.
     Dates: start: 20080101
  2. LASIX [Concomitant]
  3. MOTRIN [Concomitant]

REACTIONS (2)
  - ASTHENIA [None]
  - OEDEMA [None]
